FAERS Safety Report 12195803 (Version 1)
Quarter: 2016Q1

REPORT INFORMATION
  Report Type: Spontaneous
  Country: IR (occurrence: IR)
  Receive Date: 20160321
  Receipt Date: 20160321
  Transmission Date: 20160526
  Serious: Yes (Other)
  Sender: FDA-Public Use
  Company Number: IR-TOLMAR, INC.-2015IR012113

PATIENT
  Age: 80 Year
  Sex: Male

DRUGS (1)
  1. ELIGARD [Suspect]
     Active Substance: LEUPROLIDE ACETATE
     Indication: PROSTATE CANCER
     Dosage: 7.5 MG, UNK
     Route: 065

REACTIONS (5)
  - Lethargy [Unknown]
  - Gait disturbance [Unknown]
  - Muscular weakness [Unknown]
  - Malaise [Unknown]
  - Neuropathy peripheral [Unknown]
